FAERS Safety Report 7372904-1 (Version None)
Quarter: 2011Q1

REPORT INFORMATION
  Report Type: 
  Country: None (occurrence: None)
  Receive Date: 20110324
  Receipt Date: 20110321
  Transmission Date: 20110831
  Serious: Yes (Other)
  Sender: FDA-Public Use
  Company Number: US-PFIZER INC-2011061731

PATIENT
  Sex: Female

DRUGS (3)
  1. ZOLOFT [Suspect]
     Indication: DEPRESSION
     Dosage: 125 MG, UNK
     Route: 048
     Dates: start: 20010101
  2. ZOLOFT [Suspect]
     Dosage: 75 MG, UNK
     Route: 048
     Dates: start: 20110318
  3. ZOLOFT [Suspect]
     Dosage: 100 MG, UNK
     Route: 048

REACTIONS (4)
  - FALL [None]
  - INJURY [None]
  - FATIGUE [None]
  - EYE DISORDER [None]
